FAERS Safety Report 15921312 (Version 2)
Quarter: 2019Q1

REPORT INFORMATION
  Report Type: Spontaneous
  Country: US (occurrence: US)
  Receive Date: 20190205
  Receipt Date: 20190322
  Transmission Date: 20190417
  Serious: No
  Sender: FDA-Public Use
  Company Number: US-BAUSCH-BL-2019-002768

PATIENT
  Sex: Female

DRUGS (2)
  1. LATANOPROST OPHTHALMIC SOLUTION 0.005% [Suspect]
     Active Substance: LATANOPROST
     Indication: GLAUCOMA
     Dosage: AT BEDTIME
     Route: 047
     Dates: end: 201901
  2. LATANOPROST OPHTHALMIC SOLUTION 0.005% [Suspect]
     Active Substance: LATANOPROST
     Dosage: AT BEDTIME
     Route: 047
     Dates: start: 201901

REACTIONS (4)
  - Eye irritation [Unknown]
  - Product expiration date issue [Unknown]
  - Product lot number issue [Unknown]
  - Product quality issue [Unknown]

NARRATIVE: CASE EVENT DATE: 201901
